FAERS Safety Report 6337723-3 (Version None)
Quarter: 2009Q3

REPORT INFORMATION
  Report Type: 
  Country: None (occurrence: None)
  Receive Date: 20090902
  Receipt Date: 20090825
  Transmission Date: 20100115
  Serious: Yes (Hospitalization)
  Sender: FDA-Public Use
  Company Number: CA-JNJFOC-20090808159

PATIENT
  Sex: Female
  Weight: 77.3 kg

DRUGS (1)
  1. REMICADE [Suspect]
     Indication: DRUG USE FOR UNKNOWN INDICATION
     Dosage: 6 INFUSIONS ON UNSPECIFIED DATES
     Route: 042

REACTIONS (3)
  - CONVULSION [None]
  - DEVICE RELATED INFECTION [None]
  - HAEMATURIA [None]
